FAERS Safety Report 4874046-3 (Version None)
Quarter: 2005Q4

REPORT INFORMATION
  Report Type: 
  Country: None (occurrence: None)
  Receive Date: 20051201
  Receipt Date: 20050805
  Transmission Date: 20060501
  Serious: No
  Sender: FDA-Public Use
  Company Number: 2005PV000943

PATIENT
  Age: 54 Year
  Sex: Female
  Weight: 64.4108 kg

DRUGS (2)
  1. BYETTA [Suspect]
     Indication: DIABETES MELLITUS NON-INSULIN-DEPENDENT
     Dosage: 5 MCG;QAM;SC
     Route: 058
     Dates: start: 20050805
  2. MICRONASE [Concomitant]

REACTIONS (3)
  - FOOD CRAVING [None]
  - MALAISE [None]
  - NAUSEA [None]
